FAERS Safety Report 23082944 (Version 3)
Quarter: 2024Q1

REPORT INFORMATION
  Report Type: Spontaneous
  Country: CA (occurrence: CA)
  Receive Date: 20231019
  Receipt Date: 20240325
  Transmission Date: 20240410
  Serious: Yes (Other)
  Sender: FDA-Public Use
  Company Number: CA-PFIZER INC-202300159890

PATIENT
  Age: 47 Year
  Sex: Male

DRUGS (8)
  1. ABRILADA [Suspect]
     Active Substance: ADALIMUMAB-AFZB
     Indication: Rheumatoid arthritis
     Dosage: 40 MG, PREFILLED PEN EVERY OTHER WEEK
     Route: 058
     Dates: start: 20230326
  2. ABRILADA [Suspect]
     Active Substance: ADALIMUMAB-AFZB
     Dosage: 40 MG, PREFILLED PEN EVERY OTHER WEEK
     Route: 058
     Dates: start: 20231007
  3. CELEBREX [Concomitant]
     Active Substance: CELECOXIB
     Dosage: 1 DF
     Dates: start: 202206
  4. FOLIC ACID [Concomitant]
     Active Substance: FOLIC ACID
     Dosage: 1 DF
     Dates: start: 202203
  5. HYDROXYCHLOROQUINE [Concomitant]
     Active Substance: HYDROXYCHLOROQUINE
     Dosage: 400 MG, 1X/DAY
     Dates: start: 202206
  6. METHOTREXATE [Concomitant]
     Active Substance: METHOTREXATE
     Indication: Rheumatoid arthritis
     Dosage: 20MG ONCE WEEKLY
     Route: 048
     Dates: start: 202203
  7. SULFASALAZINE [Concomitant]
     Active Substance: SULFASALAZINE
     Indication: Rheumatoid arthritis
     Dosage: 2000 MG, 1X/DAY
     Dates: start: 202206
  8. SULFASALAZINE [Concomitant]
     Active Substance: SULFASALAZINE
     Dosage: 1000 MG, 2X/DAY
     Route: 048
     Dates: start: 202206, end: 202308

REACTIONS (4)
  - Nasopharyngitis [Recovering/Resolving]
  - Injection site pain [Not Recovered/Not Resolved]
  - Pain in extremity [Recovering/Resolving]
  - Device leakage [Unknown]

NARRATIVE: CASE EVENT DATE: 20231007
